FAERS Safety Report 5146763-1 (Version None)
Quarter: 2006Q4

REPORT INFORMATION
  Report Type: 
  Country: None (occurrence: None)
  Receive Date: 20061107
  Receipt Date: 20061107
  Transmission Date: 20070319
  Serious: Yes (Life-Threatening, Hospitalization, Disabling)
  Sender: FDA-Public Use
  Company Number: None

PATIENT
  Age: 42 Year
  Sex: Female
  Weight: 54.4316 kg

DRUGS (1)
  1. AXERT [Suspect]
     Indication: MIGRAINE
     Dosage: PRN OF MIGRAINE PO
     Route: 048
     Dates: start: 20060201, end: 20061028

REACTIONS (3)
  - MYOCARDIAL INFARCTION [None]
  - PRINZMETAL ANGINA [None]
  - THERAPY NON-RESPONDER [None]
